FAERS Safety Report 22921391 (Version 2)
Quarter: 2024Q3

REPORT INFORMATION
  Report Type: Spontaneous
  Country: US (occurrence: None)
  Receive Date: 20230908
  Receipt Date: 20240906
  Transmission Date: 20241016
  Serious: No
  Sender: DOMPE FARMACEUTICI
  Company Number: US-FARMAPROD-202306-1675

PATIENT
  Sex: Female
  Weight: 47.17 kg

DRUGS (12)
  1. OXERVATE [Suspect]
     Active Substance: CENEGERMIN-BKBJ
     Indication: Neurotrophic keratopathy
     Route: 047
     Dates: start: 20230515
  2. OXERVATE [Suspect]
     Active Substance: CENEGERMIN-BKBJ
  3. FOSAMAX [Concomitant]
     Active Substance: ALENDRONATE SODIUM
  4. SIMVASTATIN [Concomitant]
     Active Substance: SIMVASTATIN
  5. VALACYCLOVIR [Concomitant]
     Active Substance: VALACYCLOVIR HYDROCHLORIDE
  6. GENTEAL TEARS [Concomitant]
     Active Substance: DEXTRAN 70\HYPROMELLOSE 2910 (4000 MPA.S)
     Dosage: 0.1%-0.3%
  7. VISINE DRY EYE RELIEF [Concomitant]
     Active Substance: GLYCERIN\HYPROMELLOSES\POLYETHYLENE GLYCOL 400
  8. OCUVITE ADULT 50 PLUS [Concomitant]
  9. KETOROLAC TROMETHAMINE [Concomitant]
     Active Substance: KETOROLAC TROMETHAMINE
  10. CALCIUM [Concomitant]
     Active Substance: CALCIUM
     Dosage: 500 (1250)
  11. VITAMINS [Concomitant]
     Active Substance: VITAMINS
     Dosage: 18 MG-0.4 MG
  12. SIMVASTATIN [Concomitant]
     Active Substance: SIMVASTATIN

REACTIONS (6)
  - Eye irritation [Unknown]
  - Eye irritation [Not Recovered/Not Resolved]
  - Foreign body sensation in eyes [Unknown]
  - Eye pruritus [Unknown]
  - Rhinorrhoea [Unknown]
  - Lacrimation increased [Not Recovered/Not Resolved]
